FAERS Safety Report 8002965-8 (Version None)
Quarter: 2011Q4

REPORT INFORMATION
  Report Type: 
  Country: None (occurrence: None)
  Receive Date: 20111222
  Receipt Date: 20110601
  Transmission Date: 20120403
  Serious: No
  Sender: FDA-Public Use
  Company Number: US-GLAXOSMITHKLINE-A0929890A

PATIENT
  Age: 77 Year
  Sex: Male

DRUGS (5)
  1. SIMVASTATIN [Concomitant]
  2. CIMETIDINE [Concomitant]
  3. MAGNESIUM HYDROXIDE TAB [Concomitant]
  4. TAMSULOSIN HCL [Concomitant]
  5. AVODART [Suspect]
     Indication: DYSURIA
     Dosage: 1CAP PER DAY
     Route: 048
     Dates: start: 20100701

REACTIONS (2)
  - BREAST ENLARGEMENT [None]
  - BREAST TENDERNESS [None]
